FAERS Safety Report 7948500-1 (Version None)
Quarter: 2011Q4

REPORT INFORMATION
  Report Type: 
  Country: None (occurrence: None)
  Receive Date: 20111130
  Receipt Date: 20110906
  Transmission Date: 20120403
  Serious: No
  Sender: FDA-Public Use
  Company Number: US-PFIZER INC-2011166064

PATIENT
  Sex: Female

DRUGS (2)
  1. PENICILLIN G PROCAINE [Suspect]
  2. KEFLEX [Suspect]

REACTIONS (1)
  - URTICARIA [None]
